FAERS Safety Report 16958864 (Version 2)
Quarter: 2020Q2

REPORT INFORMATION
  Report Type: Spontaneous
  Country: DK (occurrence: DK)
  Receive Date: 20191024
  Receipt Date: 20200513
  Transmission Date: 20200713
  Serious: Yes (Hospitalization, Other)
  Sender: FDA-Public Use
  Company Number: DK-PFM-2019-12609

PATIENT

DRUGS (11)
  1. NAVELBINE [Suspect]
     Active Substance: VINORELBINE TARTRATE
     Indication: NON-SMALL CELL LUNG CANCER
     Dosage: 80 MG (DOSE:160 MG)
     Route: 048
     Dates: start: 20190923
  2. ITRACONAZOLE. [Suspect]
     Active Substance: ITRACONAZOLE
     Indication: ORAL CANDIDIASIS
     Dosage: 100 MG
     Route: 048
     Dates: start: 20190916, end: 20190928
  3. CARBOPLATIN ACCORD [Interacting]
     Active Substance: CARBOPLATIN
     Indication: NON-SMALL CELL LUNG CANCER
     Dosage: 500 MG (10 MG/ML)
     Route: 042
     Dates: start: 20190923
  4. NIDAZOL [METRONIDAZOLE BENZOATE] [Suspect]
     Active Substance: METRONIDAZOLE BENZOATE
     Indication: ORAL CANDIDIASIS
     Dosage: 400 MG, DAILY (DOSE : 100 MG)
     Route: 048
     Dates: start: 20190916, end: 20190928
  5. PREDNISOLONE. [Concomitant]
     Active Substance: PREDNISOLONE
     Indication: ADRENOCORTICAL STEROID THERAPY
     Dosage: 50 MG (STRENGTH: 50 MG.) (DOSAGE: 50 MG 1 HOUR BEFORE TREATMENT WITH CARBOPLATIN AND UMBILICAL VEIN)
     Route: 048
     Dates: start: 20190923
  6. MORFIN DAK [Concomitant]
     Active Substance: MORPHINE HYDROCHLORIDE
     Indication: PAIN
     Dosage: 10 MG (DOSE: 5 MG AS NECESSARY)
     Route: 048
     Dates: start: 20190927
  7. AKYNZEO [Suspect]
     Active Substance: NETUPITANT\PALONOSETRON HYDROCHLORIDE
     Indication: PROPHYLAXIS OF NAUSEA AND VOMITING
     Dosage: 1 DF (STRENGHT: 300 MG / 0.5 MG) (1 CAPSULE 1 HOUR BEFORE CARBOPLATIN AND NAVELBINE TREATMENT)
     Route: 048
     Dates: start: 20190923
  8. BENDROZA [Concomitant]
     Active Substance: BENDROFLUMETHIAZIDE\POTASSIUM CHLORIDE
     Indication: DIURETIC THERAPY
     Dosage: 1 DF, DAILY (STRENGHT: 1.25 + 375 MG)
     Route: 048
     Dates: start: 20190729
  9. MYCOSTATIN [Concomitant]
     Active Substance: NYSTATIN
     Indication: ORAL CANDIDIASIS
     Dosage: 3 ML (100.000 IE/ML) DAILY
     Route: 048
     Dates: start: 20190927
  10. LIDOCAIN [Concomitant]
     Active Substance: LIDOCAINE
     Indication: PAIN
     Dosage: 20 MG/ML (DOSE: 5 ML AS NECESSARY)
     Route: 048
     Dates: start: 20190927
  11. CHAMPIX [Concomitant]
     Active Substance: VARENICLINE TARTRATE
     Indication: EX-TOBACCO USER
     Dosage: 2 MG DAILY
     Route: 048
     Dates: start: 20190717

REACTIONS (21)
  - Constipation [Not Recovered/Not Resolved]
  - Drug interaction [Not Recovered/Not Resolved]
  - Fatigue [Not Recovered/Not Resolved]
  - Liver disorder [Recovered/Resolved]
  - Ileus [Recovered/Resolved]
  - Temperature intolerance [Not Recovered/Not Resolved]
  - Amnesia [Unknown]
  - Alopecia [Unknown]
  - Neutropenia [Recovered/Resolved]
  - Gastrointestinal disorder [Recovered/Resolved]
  - Dizziness [Not Recovered/Not Resolved]
  - Sepsis [Recovered/Resolved]
  - Hallucination, auditory [Unknown]
  - Dehydration [Not Recovered/Not Resolved]
  - Leukopenia [Not Recovered/Not Resolved]
  - Skin exfoliation [Not Recovered/Not Resolved]
  - Oral fungal infection [Unknown]
  - Pyrexia [Not Recovered/Not Resolved]
  - Mucosal disorder [Recovered/Resolved]
  - Immune system disorder [Unknown]
  - Stomatitis [Not Recovered/Not Resolved]

NARRATIVE: CASE EVENT DATE: 201909
